FAERS Safety Report 9615759 (Version 2)
Quarter: 2013Q4

REPORT INFORMATION
  Report Type: Report from Study
  Country: GB (occurrence: GB)
  Receive Date: 20131011
  Receipt Date: 20131011
  Transmission Date: 20140711
  Serious: Yes (Other)
  Sender: FDA-Public Use
  Company Number: GB-VERTEX PHARMACEUTICALS INC-2013-006872

PATIENT
  Age: 36 Year
  Sex: Male

DRUGS (5)
  1. VX-950 (TELAPREVIR) [Suspect]
     Indication: HEPATITIS C
     Dosage: 1125 MG, BID
     Dates: start: 20130429, end: 20130622
  2. PEGINTERFERON ALFA [Suspect]
     Indication: HEPATITIS C
     Dosage: UNK, QW
     Route: 058
     Dates: start: 20130429
  3. RIBAVIRIN [Suspect]
     Indication: HEPATITIS C
     Dosage: UNK, BID
     Route: 048
     Dates: start: 20130429
  4. CETIRIZINE [Concomitant]
     Indication: PRURITUS
  5. CETIRIZINE [Concomitant]
     Dosage: TWO TO THREE TIMES DAILY

REACTIONS (3)
  - White blood cell count decreased [Not Recovered/Not Resolved]
  - Pruritus generalised [Not Recovered/Not Resolved]
  - Rash [Not Recovered/Not Resolved]
